FAERS Safety Report 7920422-1 (Version None)
Quarter: 2011Q4

REPORT INFORMATION
  Report Type: 
  Country: None (occurrence: None)
  Receive Date: 20111117
  Receipt Date: 20111107
  Transmission Date: 20120403
  Serious: Yes (Other)
  Sender: FDA-Public Use
  Company Number: PHHY2011BR099096

PATIENT
  Sex: Female
  Weight: 73 kg

DRUGS (4)
  1. DIOVAN [Suspect]
     Indication: BLOOD CHOLESTEROL
  2. OMEPRAZOLE [Concomitant]
     Indication: GASTRIC DISORDER
     Dosage: 20 MG, (ONE TABLET A DAY)
     Route: 048
  3. ROSUVASTATIN [Concomitant]
     Indication: BLOOD CHOLESTEROL
     Dosage: 10 MG, (ONE TABLET A DAY AT NIGHT)
     Route: 048
  4. DIOVAN [Suspect]
     Indication: HYPERTENSION
     Dosage: 160 MG, (ONE TABLET IN THE MORNING)
     Route: 048

REACTIONS (5)
  - DIABETES MELLITUS [None]
  - HEADACHE [None]
  - INSOMNIA [None]
  - FEELING ABNORMAL [None]
  - DIABETES MELLITUS INADEQUATE CONTROL [None]
